FAERS Safety Report 11314208 (Version 2)
Quarter: 2015Q3

REPORT INFORMATION
  Report Type: Spontaneous
  Country: BR (occurrence: BR)
  Receive Date: 20150727
  Receipt Date: 20150807
  Transmission Date: 20151125
  Serious: Yes (Other)
  Sender: FDA-Public Use
  Company Number: BR-SA-2014SA138244

PATIENT
  Age: 42 Year
  Sex: Female
  Weight: 66 kg

DRUGS (3)
  1. AAS [Suspect]
     Active Substance: ASPIRIN
     Indication: ANTICOAGULANT THERAPY
     Route: 048
     Dates: start: 201409
  2. ENOXAPARIN SODIUM. [Suspect]
     Active Substance: ENOXAPARIN SODIUM
     Indication: PROPHYLAXIS
     Dosage: FORM: SYRINGE?ROUTE: ABDOMEN
     Dates: start: 20141002, end: 20150318
  3. ENOXAPARIN SODIUM. [Suspect]
     Active Substance: ENOXAPARIN SODIUM
     Indication: HYPERCOAGULATION
     Dosage: FORM: SYRINGE?ROUTE: ABDOMEN
     Dates: start: 20141002, end: 20150318

REACTIONS (5)
  - Gestational diabetes [Unknown]
  - Exposure during pregnancy [Unknown]
  - Haemorrhage [Unknown]
  - Amniotic fluid volume decreased [Unknown]
  - Premature delivery [Unknown]
